FAERS Safety Report 10061698 (Version 2)
Quarter: 2014Q2

REPORT INFORMATION
  Report Type: Spontaneous
  Country: GB (occurrence: GB)
  Receive Date: 20140407
  Receipt Date: 20140421
  Transmission Date: 20141212
  Serious: No
  Sender: FDA-Public Use
  Company Number: GB-SA-2014SA037321

PATIENT
  Sex: Female

DRUGS (1)
  1. ARAVA [Suspect]
     Indication: PRODUCT USED FOR UNKNOWN INDICATION
     Route: 065
     Dates: end: 201309

REACTIONS (1)
  - Exposure during pregnancy [Unknown]
